FAERS Safety Report 5693996-1 (Version None)
Quarter: 2008Q2

REPORT INFORMATION
  Report Type: 
  Country: None (occurrence: None)
  Receive Date: 20080403
  Receipt Date: 20080326
  Transmission Date: 20081010
  Serious: Yes (Other)
  Sender: FDA-Public Use
  Company Number: US-GENENTECH-258352

PATIENT
  Age: 26 Year
  Sex: Female

DRUGS (1)
  1. RITUXAN [Suspect]
     Indication: SYSTEMIC LUPUS ERYTHEMATOSUS
     Dosage: UNK, SINGLE
     Route: 042
     Dates: start: 20080312, end: 20080312

REACTIONS (4)
  - GENITAL ULCERATION [None]
  - MOUTH ULCERATION [None]
  - SKIN EXFOLIATION [None]
  - SKIN ULCER [None]
